FAERS Safety Report 6068891-9 (Version None)
Quarter: 2009Q1

REPORT INFORMATION
  Report Type: 
  Country: None (occurrence: None)
  Receive Date: 20090203
  Receipt Date: 20090115
  Transmission Date: 20090719
  Serious: No
  Sender: FDA-Public Use
  Company Number: 2009-189164-NL

PATIENT
  Age: 38 Year
  Sex: Male

DRUGS (3)
  1. MIRTAZAPINE [Suspect]
     Indication: DEPRESSED MOOD
     Dosage: DF
  2. NALTREXONE HYDROCHLORIDE [Suspect]
     Dosage: DF
  3. METHADONE HCL [Suspect]
     Dosage: DF ORAL
     Route: 048

REACTIONS (9)
  - ABDOMINAL PAIN UPPER [None]
  - CONVULSION [None]
  - DIARRHOEA [None]
  - DRUG INTERACTION [None]
  - DYSPNOEA [None]
  - MUSCLE TWITCHING [None]
  - PAIN IN EXTREMITY [None]
  - PUPIL FIXED [None]
  - VOMITING [None]
